FAERS Safety Report 26216089 (Version 1)
Quarter: 2025Q4

REPORT INFORMATION
  Report Type: Spontaneous
  Country: US (occurrence: US)
  Receive Date: 20251231
  Receipt Date: 20251231
  Transmission Date: 20260118
  Serious: No
  Sender: QUAGEN PHARMACEUTICALS
  Company Number: US-QUAGEN-2025QUASPO00943

PATIENT
  Age: 5 Month
  Sex: Male

DRUGS (3)
  1. FLUOCINOLONE ACETONIDE [Suspect]
     Active Substance: FLUOCINOLONE ACETONIDE
     Indication: Eczema
     Route: 065
     Dates: start: 2025
  2. AVEENO [Suspect]
     Active Substance: DIMETHICONE\HOMOSALATE\OCTINOXATE\OCTISALATE\TITANIUM DIOXIDE
     Indication: Eczema
     Route: 065
     Dates: start: 2025
  3. AQUAPHOR [Suspect]
     Active Substance: PETROLATUM
     Indication: Eczema
     Route: 065
     Dates: start: 2025

REACTIONS (4)
  - Crying [Unknown]
  - Scratch [Unknown]
  - Pruritus [Unknown]
  - Product use in unapproved indication [Unknown]

NARRATIVE: CASE EVENT DATE: 20250101
